FAERS Safety Report 12889144 (Version 4)
Quarter: 2018Q1

REPORT INFORMATION
  Report Type: Spontaneous
  Country: US (occurrence: US)
  Receive Date: 20161027
  Receipt Date: 20180104
  Transmission Date: 20180508
  Serious: Yes (Hospitalization, Disabling, Other)
  Sender: FDA-Public Use
  Company Number: US-PFIZER INC-1867168

PATIENT
  Age: 48 Year
  Sex: Male

DRUGS (4)
  1. BUPIVACAINE HCL [Suspect]
     Active Substance: BUPIVACAINE HYDROCHLORIDE
     Indication: PAIN MANAGEMENT
  2. BETAMETHASONE. [Suspect]
     Active Substance: BETAMETHASONE
     Indication: LUMBAR RADICULOPATHY
     Dosage: 12 MG, UNK (2 ML)
     Route: 008
  3. BUPIVACAINE HCL [Suspect]
     Active Substance: BUPIVACAINE HYDROCHLORIDE
     Indication: LUMBAR RADICULOPATHY
     Dosage: 4 ML, UNK (4 ML OF 0.25%)
     Route: 008
  4. BETAMETHASONE. [Suspect]
     Active Substance: BETAMETHASONE
     Indication: PAIN MANAGEMENT

REACTIONS (3)
  - Paraparesis [Recovering/Resolving]
  - Urinary retention [Recovering/Resolving]
  - Sensory loss [Recovering/Resolving]
